FAERS Safety Report 25398117 (Version 2)
Quarter: 2025Q2

REPORT INFORMATION
  Report Type: Report from Study
  Country: US (occurrence: US)
  Receive Date: 20250604
  Receipt Date: 20250617
  Transmission Date: 20250717
  Serious: Yes (Hospitalization)
  Sender: IDORSIA PHARMACEUTICALS
  Company Number: US-IDORSIA-010607-2025-US

PATIENT
  Age: 72 Year
  Sex: Female

DRUGS (3)
  1. TRYVIO [Suspect]
     Active Substance: APROCITENTAN
     Indication: Essential hypertension
     Dosage: 12.5 MG, QD
     Route: 048
     Dates: start: 20250328
  2. SYNVISC [Concomitant]
     Active Substance: HYLAN G-F 20
  3. TERIPARATIDE [Concomitant]
     Active Substance: TERIPARATIDE
     Indication: Osteoporosis

REACTIONS (1)
  - Joint dislocation [Recovering/Resolving]

NARRATIVE: CASE EVENT DATE: 20250524
